FAERS Safety Report 9640775 (Version 4)
Quarter: 2014Q1

REPORT INFORMATION
  Report Type: Spontaneous
  Country: US (occurrence: None)
  Receive Date: 20131021
  Receipt Date: 20140328
  Transmission Date: 20141002
  Serious: Yes (Congenital Anomaly)
  Sender: FDA-Public Use
  Company Number: KAD201309-001252

PATIENT
  Age: 29 Year
  Sex: Female

DRUGS (7)
  1. RIBAVIRIN [Suspect]
     Indication: HEPATITIS C
     Route: 048
     Dates: start: 20111020, end: 20111115
  2. REYATAZ [Suspect]
     Indication: HIV INFECTION
  3. NORVIR [Suspect]
     Indication: HIV INFECTION
  4. TRUVADA [Suspect]
     Indication: HIV INFECTION
  5. PROVENTIL HFA [Suspect]
     Indication: ASTHMA
  6. PRENATAL VITAMINS [Suspect]
  7. FOLATE SUPPLEMENT (FOLATE SUPPLEMENT) [Suspect]

REACTIONS (4)
  - Exposure during pregnancy [None]
  - Pregnancy [None]
  - Tobacco user [None]
  - Congenital anomaly in offspring [None]
